FAERS Safety Report 7739267-0 (Version None)
Quarter: 2011Q3

REPORT INFORMATION
  Report Type: 
  Country: None (occurrence: None)
  Receive Date: 20110909
  Receipt Date: 20110831
  Transmission Date: 20111222
  Serious: Yes (Other)
  Sender: FDA-Public Use
  Company Number: US-JNJFOC-20110900850

PATIENT
  Sex: Female
  Weight: 23.59 kg

DRUGS (9)
  1. INDOMETHACIN [Concomitant]
     Indication: ARTHRITIS
     Route: 048
  2. MULTI-VITAMINS [Concomitant]
     Route: 048
  3. PREDNISONE [Concomitant]
     Indication: ARTHRITIS
     Route: 048
  4. FOLIC ACID [Concomitant]
     Indication: ARTHRITIS
     Route: 048
  5. REMICADE [Suspect]
     Indication: RHEUMATOID ARTHRITIS
     Route: 042
     Dates: start: 20100101, end: 20100101
  6. ZANTAC [Concomitant]
     Route: 048
  7. UNKNOWN MEDICATION FOR RHEUMATOID ARTHRITIS [Suspect]
     Indication: RHEUMATOID ARTHRITIS
     Dates: start: 20100101, end: 20110101
  8. METHOTREXATE [Concomitant]
     Indication: ARTHRITIS
     Route: 048
  9. HYDROCODONE BITARTRATE [Concomitant]
     Indication: PAIN
     Dosage: AS NEEDED
     Route: 048

REACTIONS (5)
  - HEART RATE ABNORMAL [None]
  - DRUG HYPERSENSITIVITY [None]
  - RESPIRATORY ARREST [None]
  - INFUSION RELATED REACTION [None]
  - DRUG INEFFECTIVE [None]
